FAERS Safety Report 8457856-5 (Version None)
Quarter: 2012Q2

REPORT INFORMATION
  Report Type: 
  Country: None (occurrence: None)
  Receive Date: 20120323
  Receipt Date: 20110811
  Transmission Date: 20120825
  Serious: Yes (Hospitalization)
  Sender: FDA-Public Use
  Company Number: 163-21880-11081610

PATIENT
  Age: 52 Year
  Sex: Male

DRUGS (5)
  1. LENALIDOMIDE [Suspect]
     Indication: MULTIPLE MYELOMA
     Dosage: 10 MG, DAILY, PO
     Route: 048
     Dates: start: 20110517, end: 20110101
  2. DIAZEPAM [Concomitant]
  3. VELCADE [Concomitant]
  4. ZOFRAN [Concomitant]
  5. SYMBICORT (SYMBICORT TURBUHALER ^DRACO^) [Concomitant]

REACTIONS (1)
  - PULMONARY EMBOLISM [None]
